FAERS Safety Report 22602707 (Version 3)
Quarter: 2023Q2

REPORT INFORMATION
  Report Type: Other
  Country: PK (occurrence: None)
  Receive Date: 20230615
  Receipt Date: 20230626
  Transmission Date: 20230722
  Serious: Yes (Death)
  Sender: FDA-Public Use
  Company Number: PK-ROCHE-3367978

PATIENT
  Age: 46 Year
  Sex: Male

DRUGS (1)
  1. AVASTIN [Suspect]
     Active Substance: BEVACIZUMAB
     Indication: Colorectal cancer metastatic
     Dosage: 18 CYCLES
     Route: 042
     Dates: start: 20230303

REACTIONS (5)
  - Death [Fatal]
  - Vomiting [Unknown]
  - Diarrhoea [Unknown]
  - Loss of consciousness [Unknown]
  - Hypoaesthesia [Unknown]

NARRATIVE: CASE EVENT DATE: 20230523
